FAERS Safety Report 13462812 (Version 2)
Quarter: 2017Q3

REPORT INFORMATION
  Report Type: Spontaneous
  Country: US (occurrence: US)
  Receive Date: 20170420
  Receipt Date: 20170731
  Transmission Date: 20171127
  Serious: No
  Sender: FDA-Public Use
  Company Number: US-JNJFOC-20170405279

PATIENT
  Age: 82 Year
  Sex: Male
  Weight: 63.5 kg

DRUGS (11)
  1. ZYRTEC [Suspect]
     Active Substance: CETIRIZINE HYDROCHLORIDE
     Indication: EYE PRURITUS
     Dosage: HALF A TABLET, ABOUT 5 MG, TAKEN FOR 25 DAYS
     Route: 048
     Dates: start: 20170309, end: 20170402
  2. ZYRTEC [Suspect]
     Active Substance: CETIRIZINE HYDROCHLORIDE
     Indication: RHINORRHOEA
     Route: 048
     Dates: start: 20170308, end: 20170308
  3. ZYRTEC [Suspect]
     Active Substance: CETIRIZINE HYDROCHLORIDE
     Indication: SNEEZING
     Route: 048
     Dates: start: 20170308, end: 20170308
  4. ZYRTEC [Suspect]
     Active Substance: CETIRIZINE HYDROCHLORIDE
     Indication: SNEEZING
     Dosage: HALF A TABLET, ABOUT 5 MG, TAKEN FOR 25 DAYS
     Route: 048
     Dates: start: 20170309, end: 20170402
  5. TAZTIA XT [Concomitant]
     Active Substance: DILTIAZEM HYDROCHLORIDE
     Indication: HYPERTENSION
     Route: 065
  6. ZYRTEC [Suspect]
     Active Substance: CETIRIZINE HYDROCHLORIDE
     Indication: LACRIMATION INCREASED
     Dosage: HALF A TABLET, ABOUT 5 MG, TAKEN FOR 25 DAYS
     Route: 048
     Dates: start: 20170309, end: 20170402
  7. PREDNISONE. [Concomitant]
     Active Substance: PREDNISONE
     Indication: EYELID PTOSIS
     Dosage: 1-2 YEARS
     Route: 065
  8. ZYRTEC [Suspect]
     Active Substance: CETIRIZINE HYDROCHLORIDE
     Indication: EYE PRURITUS
     Route: 048
     Dates: start: 20170308, end: 20170308
  9. ZYRTEC [Suspect]
     Active Substance: CETIRIZINE HYDROCHLORIDE
     Indication: RHINORRHOEA
     Dosage: HALF A TABLET, ABOUT 5 MG, TAKEN FOR 25 DAYS
     Route: 048
     Dates: start: 20170309, end: 20170402
  10. ZYRTEC [Suspect]
     Active Substance: CETIRIZINE HYDROCHLORIDE
     Indication: LACRIMATION INCREASED
     Route: 048
     Dates: start: 20170308, end: 20170308
  11. PREDNISONE. [Concomitant]
     Active Substance: PREDNISONE
     Indication: OCULAR MYASTHENIA
     Dosage: 1-2 YEARS
     Route: 065

REACTIONS (3)
  - Insomnia [Not Recovered/Not Resolved]
  - Product quality issue [Unknown]
  - Drug administration error [Not Recovered/Not Resolved]

NARRATIVE: CASE EVENT DATE: 20170308
